FAERS Safety Report 5238451-8 (Version None)
Quarter: 2007Q1

REPORT INFORMATION
  Report Type: 
  Country: None (occurrence: None)
  Receive Date: 20070215
  Receipt Date: 20070202
  Transmission Date: 20070707
  Serious: Yes (Hospitalization)
  Sender: FDA-Public Use
  Company Number: DE-ELI_LILLY_AND_COMPANY-AU200702002000

PATIENT
  Age: 82 Year
  Sex: Female

DRUGS (4)
  1. LOVAN [Concomitant]
     Indication: DEPRESSION
     Dosage: 20 MG, UNK
     Route: 048
     Dates: start: 20030401
  2. ATACAND [Concomitant]
     Indication: HYPERTENSION
     Dosage: 25.5 MG, UNK
     Route: 048
     Dates: start: 20030401
  3. ZANTAC [Concomitant]
     Indication: DYSPEPSIA
     Dosage: 150 MG, UNK
     Route: 048
     Dates: start: 20030401
  4. TERIPARATIDE [Suspect]
     Indication: OSTEOPOROSIS
     Dosage: 20 UG, DAILY (1/D)
     Route: 058
     Dates: start: 20051111

REACTIONS (1)
  - CALCULUS URETERIC [None]
